FAERS Safety Report 10378125 (Version 2)
Quarter: 2015Q1

REPORT INFORMATION
  Report Type: Spontaneous
  Country: GB (occurrence: GB)
  Receive Date: 20140812
  Receipt Date: 20150225
  Transmission Date: 20150720
  Serious: Yes (Disabling)
  Sender: FDA-Public Use
  Company Number: GB-SA-2014SA105848

PATIENT
  Age: 64 Year
  Sex: Male
  Weight: 95.6 kg

DRUGS (5)
  1. SILDENAFIL. [Concomitant]
     Active Substance: SILDENAFIL
     Dates: start: 20140403, end: 20140501
  2. GLICLAZIDE [Concomitant]
     Active Substance: GLICLAZIDE
     Dates: start: 20140501, end: 20140626
  3. ATORVASTATIN [Concomitant]
     Active Substance: ATORVASTATIN
     Dates: start: 20140403, end: 20140501
  4. CLOPIDOGREL BISULFATE. [Suspect]
     Active Substance: CLOPIDOGREL BISULFATE
     Route: 065
     Dates: start: 20140403, end: 20140611
  5. LOSARTAN [Concomitant]
     Active Substance: LOSARTAN
     Dates: start: 20140403, end: 20140501

REACTIONS (1)
  - Dyspnoea [Recovered/Resolved]

NARRATIVE: CASE EVENT DATE: 20140526
